FAERS Safety Report 10454674 (Version 2)
Quarter: 2014Q3

REPORT INFORMATION
  Report Type: Spontaneous
  Country: CH (occurrence: CH)
  Receive Date: 20140915
  Receipt Date: 20140915
  Transmission Date: 20150326
  Serious: Yes (Other)
  Sender: FDA-Public Use
  Company Number: CH-ELI_LILLY_AND_COMPANY-CH201406002285

PATIENT
  Sex: Female
  Weight: 75 kg

DRUGS (14)
  1. ALIMTA [Suspect]
     Active Substance: PEMETREXED DISODIUM
     Dosage: 740 MG, CYCLICAL
     Route: 042
     Dates: start: 20140519
  2. NEUPOGEN [Concomitant]
     Active Substance: FILGRASTIM
     Indication: PREMEDICATION
     Dosage: 30000000 UNK, UNK
  3. ALIMTA [Suspect]
     Active Substance: PEMETREXED DISODIUM
     Dosage: 800 MG, CYCLICAL
     Route: 042
     Dates: start: 20140103
  4. DEXAMETHASONE. [Concomitant]
     Active Substance: DEXAMETHASONE
     Indication: PREMEDICATION
  5. FOLIC ACID. [Concomitant]
     Active Substance: FOLIC ACID
     Indication: PREMEDICATION
  6. ALIMTA [Suspect]
     Active Substance: PEMETREXED DISODIUM
     Indication: PRODUCT USED FOR UNKNOWN INDICATION
     Dosage: 930 MG, CYCLICAL
     Route: 042
     Dates: start: 20130927
  7. ALIMTA [Suspect]
     Active Substance: PEMETREXED DISODIUM
     Dosage: 800 MG, CYCLICAL
     Route: 042
     Dates: start: 20131108
  8. ALIMTA [Suspect]
     Active Substance: PEMETREXED DISODIUM
     Dosage: 695 MG, CYCLICAL
     Route: 042
     Dates: start: 20140612
  9. ALIMTA [Suspect]
     Active Substance: PEMETREXED DISODIUM
     Dosage: 800 MG, CYCLICAL
     Route: 042
     Dates: start: 20140307
  10. ALIMTA [Suspect]
     Active Substance: PEMETREXED DISODIUM
     Dosage: 800 MG, CYCLICAL
     Route: 042
     Dates: start: 20140124
  11. ALIMTA [Suspect]
     Active Substance: PEMETREXED DISODIUM
     Dosage: 800 MG, CYCLICAL
     Route: 042
     Dates: start: 20140214
  12. ALIMTA [Suspect]
     Active Substance: PEMETREXED DISODIUM
     Dosage: 685 MG, CYCLICAL
     Route: 042
     Dates: start: 20140703, end: 20140813
  13. CARBOPLATIN. [Concomitant]
     Active Substance: CARBOPLATIN
     Dosage: 670 MG, CYCLICAL
     Dates: start: 20130927
  14. VITAMIN B12 [Concomitant]
     Active Substance: CYANOCOBALAMIN
     Indication: PREMEDICATION

REACTIONS (3)
  - Vasculitis [Unknown]
  - Pneumonia [Recovered/Resolved]
  - Off label use [Unknown]
